FAERS Safety Report 12633060 (Version 1)
Quarter: 2016Q3

REPORT INFORMATION
  Report Type: Spontaneous
  Country: US (occurrence: None)
  Receive Date: 20160808
  Receipt Date: 20160808
  Transmission Date: 20161109
  Serious: Yes (Disabling)
  Sender: FDA-Public Use
  Company Number: None

PATIENT
  Age: 49 Year
  Sex: Female
  Weight: 72.58 kg

DRUGS (1)
  1. DULOXETINE. [Suspect]
     Active Substance: DULOXETINE
     Indication: MAJOR DEPRESSION
     Dosage: 30 CAPSULE(S)  IN THE MORNING TAKEN BY MOUTH
     Route: 048
     Dates: start: 20160701, end: 20160730

REACTIONS (6)
  - Agitation [None]
  - Anxiety [None]
  - Headache [None]
  - Panic attack [None]
  - Product substitution issue [None]
  - Anger [None]

NARRATIVE: CASE EVENT DATE: 20160801
